FAERS Safety Report 18221952 (Version 4)
Quarter: 2021Q4

REPORT INFORMATION
  Report Type: Report from Study
  Country: None (occurrence: US)
  Receive Date: 20200902
  Receipt Date: 20211202
  Transmission Date: 20220303
  Serious: No
  Sender: FDA-Public Use
  Company Number: US-AKCEA THERAPEUTICS-2020IS001368

PATIENT
  Age: 63 Year
  Sex: Male

DRUGS (2)
  1. TEGSEDI [Suspect]
     Active Substance: INOTERSEN SODIUM
     Indication: Hereditary neuropathic amyloidosis
     Route: 058
     Dates: start: 20190108
  2. DEVICE [Suspect]
     Active Substance: DEVICE

REACTIONS (7)
  - Creatinine urine abnormal [Unknown]
  - Urine protein/creatinine ratio abnormal [Unknown]
  - Protein urine present [Unknown]
  - Blood creatinine increased [Unknown]
  - Glomerular filtration rate decreased [Unknown]
  - Platelet count decreased [Unknown]
  - Urine abnormality [Unknown]

NARRATIVE: CASE EVENT DATE: 20210916
